FAERS Safety Report 12081692 (Version 1)
Quarter: 2016Q1

REPORT INFORMATION
  Report Type: Spontaneous
  Country: US (occurrence: US)
  Receive Date: 20160216
  Receipt Date: 20160216
  Transmission Date: 20160526
  Serious: No
  Sender: FDA-Public Use
  Company Number: US-PERRIGO-15US008954

PATIENT
  Age: 2 Year
  Sex: Male
  Weight: 14.51 kg

DRUGS (3)
  1. IBUPROFEN. [Suspect]
     Active Substance: IBUPROFEN
     Indication: PYREXIA
     Dosage: 100 MG, EVERY 4 TO 6 HOURS
     Route: 048
     Dates: start: 20150815, end: 20150817
  2. IBUPROFEN. [Concomitant]
     Active Substance: IBUPROFEN
     Indication: PYREXIA
     Dosage: 5 ML, SINGLE
     Route: 048
     Dates: start: 20150815, end: 20150815
  3. ANTIBIOTIC                         /00011701/ [Suspect]
     Active Substance: UNSPECIFIED INGREDIENT
     Indication: WHITE BLOOD CELL COUNT INCREASED
     Dosage: UNKNOWN, UNKNOWN
     Route: 065
     Dates: start: 20150818, end: 201508

REACTIONS (4)
  - Throat irritation [Recovered/Resolved]
  - Diarrhoea [Recovered/Resolved]
  - Inappropriate schedule of drug administration [Recovered/Resolved]
  - Oropharyngeal pain [Recovered/Resolved]

NARRATIVE: CASE EVENT DATE: 201508
